FAERS Safety Report 21524050 (Version 1)
Quarter: 2022Q4

REPORT INFORMATION
  Report Type: Spontaneous
  Country: CN (occurrence: CN)
  Receive Date: 20221029
  Receipt Date: 20221029
  Transmission Date: 20230112
  Serious: Yes (Other)
  Sender: FDA-Public Use
  Company Number: None

PATIENT
  Age: 51 Year
  Sex: Female
  Weight: 65 kg

DRUGS (6)
  1. CYCLOPHOSPHAMIDE [Suspect]
     Active Substance: CYCLOPHOSPHAMIDE
     Indication: Breast cancer female
     Dosage: 950 MG, QD, POWDER INJECTION, (DILUTED WITH NS 50 ML),  (FIRST CHEMOTHERAPY)
     Route: 042
     Dates: start: 20220913, end: 20220913
  2. CYCLOPHOSPHAMIDE [Suspect]
     Active Substance: CYCLOPHOSPHAMIDE
     Indication: Chemotherapy
  3. SODIUM CHLORIDE [Suspect]
     Active Substance: SODIUM CHLORIDE
     Indication: Medication dilution
     Dosage: 50 ML, QD, (USED TO DILUTE 950 MG CYCLOPHOSPHAMIDE), (FIRST CHEMOTHERAPY)
     Route: 042
     Dates: start: 20220913, end: 20220913
  4. SODIUM CHLORIDE [Suspect]
     Active Substance: SODIUM CHLORIDE
     Dosage: 100 ML, QD (USED TO DILUTE 135 MG PHARMORUBICIN), (FIRST CHEMOTHERAPY)
     Route: 041
     Dates: start: 20220913, end: 20220913
  5. EPIRUBICIN [Suspect]
     Active Substance: EPIRUBICIN
     Indication: Breast cancer female
     Dosage: 135 MG, QD, (DILUTED WITH NS 100 ML), (FIRST CHEMOTHERAPY)
     Route: 041
     Dates: start: 20220913, end: 20220913
  6. EPIRUBICIN [Suspect]
     Active Substance: EPIRUBICIN
     Indication: Chemotherapy

REACTIONS (2)
  - White blood cell count decreased [Recovered/Resolved]
  - Agranulocytosis [Recovered/Resolved]

NARRATIVE: CASE EVENT DATE: 20220924
